FAERS Safety Report 12104813 (Version 5)
Quarter: 2016Q3

REPORT INFORMATION
  Report Type: Spontaneous
  Country: US (occurrence: US)
  Receive Date: 20160223
  Receipt Date: 20160815
  Transmission Date: 20161109
  Serious: No
  Sender: FDA-Public Use
  Company Number: US-PFIZER INC-2016098415

PATIENT
  Age: 43 Year
  Sex: Female
  Weight: 71.66 kg

DRUGS (5)
  1. IBRANCE [Suspect]
     Active Substance: PALBOCICLIB
     Dosage: 125 MG, CYCLIC
     Route: 048
     Dates: start: 20160205
  2. XGEVA [Suspect]
     Active Substance: DENOSUMAB
     Dosage: UNK
     Dates: start: 20160216
  3. IBRANCE [Suspect]
     Active Substance: PALBOCICLIB
     Dosage: UNK
  4. IBRANCE [Suspect]
     Active Substance: PALBOCICLIB
     Dosage: UNK
  5. IBRANCE [Suspect]
     Active Substance: PALBOCICLIB
     Indication: BREAST CANCER METASTATIC
     Dosage: 125 MG, CYCLIC (DAY 1-21 Q 28 DAYS)
     Route: 048
     Dates: start: 20160205

REACTIONS (13)
  - Dry mouth [Unknown]
  - Drug dose omission [Unknown]
  - Dizziness [Unknown]
  - Cough [Unknown]
  - Dysgeusia [Unknown]
  - Back pain [Recovering/Resolving]
  - Asthenia [Unknown]
  - Anxiety [Recovering/Resolving]
  - Dry throat [Unknown]
  - Sense of oppression [Unknown]
  - Hepatic enzyme increased [Unknown]
  - Fatigue [Unknown]
  - Nausea [Unknown]
